FAERS Safety Report 9804411 (Version 2)
Quarter: 2014Q1

REPORT INFORMATION
  Report Type: Spontaneous
  Country: US (occurrence: None)
  Receive Date: 20140106
  Receipt Date: 20140123
  Transmission Date: 20141002
  Serious: Yes (Other)
  Sender: FDA-Public Use
  Company Number: US-TORRENT-00000692

PATIENT
  Age: 68 Year
  Sex: Male
  Weight: 90.72 kg

DRUGS (5)
  1. ZOLPIDEM TARTRATE [Suspect]
     Indication: INSOMNIA
     Dates: end: 20130909
  2. LIPITOR (ATORVASTATIN CALCIUM) [Concomitant]
  3. CIALIS (TADALAFIL) [Concomitant]
  4. CELEXA (CITALOPRAM) [Concomitant]
  5. RABEPRAZOLE (RABEPROZOLE) [Concomitant]

REACTIONS (6)
  - Impaired driving ability [None]
  - Imprisonment [None]
  - Accident [None]
  - Hallucination [None]
  - Aggression [None]
  - Memory impairment [None]
